FAERS Safety Report 6245818-8 (Version None)
Quarter: 2009Q2

REPORT INFORMATION
  Report Type: 
  Country: None (occurrence: None)
  Receive Date: 20090625
  Receipt Date: 20090616
  Transmission Date: 20091009
  Serious: Yes (Hospitalization)
  Sender: FDA-Public Use
  Company Number: US-BAXTER-2009BH010149

PATIENT
  Age: 72 Year
  Sex: Male

DRUGS (20)
  1. DIANEAL [Suspect]
     Indication: PERITONEAL DIALYSIS
     Route: 033
     Dates: start: 20081229
  2. CALCITRIOL [Concomitant]
     Indication: HYPERPARATHYROIDISM
     Route: 065
  3. FLUOXITINE HCL [Concomitant]
     Indication: DRUG USE FOR UNKNOWN INDICATION
     Route: 065
  4. TAMSULOSIN HCL [Concomitant]
     Indication: DRUG USE FOR UNKNOWN INDICATION
     Route: 065
  5. HYDROCODONE BITARTRATE [Concomitant]
     Indication: PAIN
     Route: 065
  6. HYDRALAZINE HCL [Concomitant]
     Indication: DRUG USE FOR UNKNOWN INDICATION
     Route: 065
  7. LARATIDINE [Concomitant]
     Indication: DRUG USE FOR UNKNOWN INDICATION
     Route: 065
  8. METOPROLOL SUCCINATE [Concomitant]
     Indication: BLOOD PRESSURE
     Route: 065
  9. ASPIRIN [Concomitant]
     Indication: DRUG USE FOR UNKNOWN INDICATION
     Route: 065
  10. COLACE [Concomitant]
     Indication: CONSTIPATION
     Route: 065
  11. ASPAR [Concomitant]
     Indication: BLOOD GLUCOSE
     Route: 065
  12. LANTUS [Concomitant]
     Indication: BLOOD GLUCOSE
     Route: 065
  13. AMLODIPINE [Concomitant]
     Indication: HYPERTENSION
     Route: 065
  14. BUSPIRONE HCL [Concomitant]
     Indication: ANXIETY
     Route: 065
  15. CALCIUM ACETATE [Concomitant]
     Indication: HYPERPHOSPHATAEMIA
     Route: 065
  16. SIMVASTATIN [Concomitant]
     Indication: BLOOD CHOLESTEROL INCREASED
     Route: 065
  17. RENAVITE [Concomitant]
     Indication: VITAMIN SUPPLEMENTATION
     Route: 065
  18. EPOGEN [Concomitant]
     Indication: ANAEMIA
     Route: 065
  19. K-DUR [Concomitant]
     Indication: BLOOD POTASSIUM DECREASED
     Route: 065
  20. IRON [Concomitant]
     Indication: ANAEMIA
     Route: 065

REACTIONS (1)
  - DIABETIC FOOT [None]
